FAERS Safety Report 17579790 (Version 1)
Quarter: 2020Q1

REPORT INFORMATION
  Report Type: Report from Study
  Country: FR (occurrence: FR)
  Receive Date: 20200325
  Receipt Date: 20200325
  Transmission Date: 20200409
  Serious: Yes (Death, Hospitalization, Other)
  Sender: FDA-Public Use
  Company Number: FR-ROCHE-2513239

PATIENT
  Age: 61 Year
  Sex: Male

DRUGS (2)
  1. VINORELBINE [Suspect]
     Active Substance: VINORELBINE TARTRATE
     Indication: NON-SMALL CELL LUNG CANCER
     Dosage: ON 19/DEC/2019, RECEIVED LAST DOSE OF VINORELBINE (CYCLE 2 DAY 1)
     Route: 048
     Dates: start: 20191128, end: 20191230
  2. ATEZOLIZUMAB. [Suspect]
     Active Substance: ATEZOLIZUMAB
     Indication: NON-SMALL CELL LUNG CANCER
     Dosage: ON 19/DEC/2019, RECEIVED LAST DOSE OF ATEZOLIZUMAB (CYCLE 2 DAY 1)
     Route: 042
     Dates: start: 20191128, end: 20200106

REACTIONS (3)
  - Pneumothorax [Recovered/Resolved]
  - Haematoma [Not Recovered/Not Resolved]
  - Neoplasm progression [Fatal]

NARRATIVE: CASE EVENT DATE: 20191217
